FAERS Safety Report 5519591-2 (Version None)
Quarter: 2007Q4

REPORT INFORMATION
  Report Type: 
  Country: None (occurrence: None)
  Receive Date: 20071116
  Receipt Date: 20071108
  Transmission Date: 20080405
  Serious: Yes (Hospitalization)
  Sender: FDA-Public Use
  Company Number: US-ELI_LILLY_AND_COMPANY-US200711002273

PATIENT
  Sex: Female

DRUGS (3)
  1. BYETTA [Suspect]
     Dosage: 5 UG, 2/D
     Route: 058
     Dates: start: 20050101
  2. BYETTA [Suspect]
     Dosage: 10 U, 2/D
     Route: 058
  3. GLYNASE [Concomitant]
     Dosage: UNK, 2/D
     Route: 048
     Dates: start: 20020101

REACTIONS (1)
  - OSTEOARTHRITIS [None]
